FAERS Safety Report 6309002-1 (Version None)
Quarter: 2009Q3

REPORT INFORMATION
  Report Type: 
  Country: None (occurrence: None)
  Receive Date: 20090813
  Receipt Date: 20090803
  Transmission Date: 20100115
  Serious: Yes (Life-Threatening, Hospitalization)
  Sender: FDA-Public Use
  Company Number: JP-ABBOTT-09P-087-0588950-00

PATIENT
  Age: 58 Year
  Sex: Male

DRUGS (9)
  1. NORVIR [Suspect]
     Indication: HIV INFECTION
     Dosage: DAILY
     Route: 048
     Dates: start: 20080401, end: 20081014
  2. KALETRA [Suspect]
     Indication: HIV INFECTION
     Dosage: DAILY
     Route: 048
     Dates: start: 20081015
  3. PREDNISOLONE [Suspect]
     Indication: ERYTHEMA MULTIFORME
     Dates: start: 20080401
  4. ATAZANAVIR [Concomitant]
     Indication: HIV INFECTION
     Dosage: DAILY
     Route: 048
     Dates: start: 20080401, end: 20081014
  5. EMTRICITABINE W/TENOFOVIR [Concomitant]
     Indication: HIV INFECTION
     Dosage: DAILY
     Route: 048
     Dates: start: 20080401, end: 20081014
  6. ABACAVIR SULFATE/LAMIVUDINE [Concomitant]
     Indication: HIV INFECTION
     Dosage: DAILY
     Route: 048
     Dates: start: 20081015
  7. PENTAMIDINE ISETHIONATE [Concomitant]
     Indication: ANTIFUNGAL PROPHYLAXIS
     Route: 055
     Dates: start: 20080401
  8. BEZAFIBRATE [Concomitant]
     Indication: HYPERLIPIDAEMIA
     Route: 048
     Dates: start: 20090211
  9. NIFEDIPINE [Concomitant]
     Indication: HYPERTENSION
     Route: 048
     Dates: start: 20090211

REACTIONS (5)
  - ADRENAL INSUFFICIENCY [None]
  - AIDS ENCEPHALOPATHY [None]
  - CEREBRAL INFARCTION [None]
  - LUMBAR VERTEBRAL FRACTURE [None]
  - PARESIS [None]
